FAERS Safety Report 5805947-7 (Version None)
Quarter: 2008Q3

REPORT INFORMATION
  Report Type: 
  Country: None (occurrence: None)
  Receive Date: 20080710
  Receipt Date: 20080630
  Transmission Date: 20090109
  Serious: Yes (Other)
  Sender: FDA-Public Use
  Company Number: US-ROCHE-557357

PATIENT
  Sex: Male
  Weight: 98 kg

DRUGS (20)
  1. ROCEPHIN [Suspect]
     Indication: INFECTION
     Route: 030
     Dates: start: 20080301
  2. GENGRAF [Concomitant]
  3. GENGRAF [Concomitant]
     Dosage: DOSAGE LOWERED
  4. CARDIZEM [Concomitant]
     Dosage: DRUG: CARDEZEM
  5. SLOW-K [Concomitant]
  6. LASIX [Concomitant]
  7. PREDNISONE TAB [Concomitant]
  8. 1 CONCOMITANT DRUG [Concomitant]
     Dosage: DRUG: ACROPRIL
  9. PROTONIX [Concomitant]
  10. ALLOPURINOL [Concomitant]
  11. ZETIA [Concomitant]
  12. COLACE [Concomitant]
  13. MULTI-VITAMIN [Concomitant]
  14. ASCORBIC ACID [Concomitant]
  15. ZINC SULFATE [Concomitant]
  16. IRON [Concomitant]
  17. LEXAPRO [Concomitant]
     Dosage: DRUG: LEXOPRO
  18. ANTIHISTAMINES [Concomitant]
  19. PRAVASTATIN [Concomitant]
  20. COUMADIN [Concomitant]

REACTIONS (1)
  - IMMUNOSUPPRESSANT DRUG LEVEL INCREASED [None]
